FAERS Safety Report 7246704-7 (Version None)
Quarter: 2011Q1

REPORT INFORMATION
  Report Type: 
  Country: None (occurrence: None)
  Receive Date: 20110127
  Receipt Date: 20110120
  Transmission Date: 20110831
  Serious: Yes (Other)
  Sender: FDA-Public Use
  Company Number: US-BIOGENIDEC-2011BI000934

PATIENT
  Age: 51 Year
  Sex: Male
  Weight: 79 kg

DRUGS (2)
  1. AVONEX [Suspect]
     Indication: MULTIPLE SCLEROSIS
     Route: 030
  2. AVONEX [Suspect]
     Route: 030

REACTIONS (4)
  - CONVULSION [None]
  - MUSCLE RIGIDITY [None]
  - MEMORY IMPAIRMENT [None]
  - TREMOR [None]
